FAERS Safety Report 5676331-4 (Version None)
Quarter: 2008Q1

REPORT INFORMATION
  Report Type: 
  Country: None (occurrence: None)
  Receive Date: 20080321
  Receipt Date: 20080310
  Transmission Date: 20080703
  Serious: Yes (Other)
  Sender: FDA-Public Use
  Company Number: US-PFIZER INC-2008022653

PATIENT
  Sex: Female
  Weight: 50 kg

DRUGS (3)
  1. AROMASIN [Suspect]
     Indication: BREAST CANCER IN SITU
     Route: 048
  2. THIAZIDES [Concomitant]
  3. DRUG, UNSPECIFIED [Concomitant]

REACTIONS (2)
  - CARPAL TUNNEL SYNDROME [None]
  - POLYARTHRITIS [None]
